FAERS Safety Report 6638876-X (Version None)
Quarter: 2010Q1

REPORT INFORMATION
  Report Type: 
  Country: None (occurrence: None)
  Receive Date: 20100317
  Receipt Date: 20100308
  Transmission Date: 20100710
  Serious: Yes (Other)
  Sender: FDA-Public Use
  Company Number: GXKR2008GB09443

PATIENT
  Age: 51 Year
  Sex: Male

DRUGS (13)
  1. DIHYDROCODEINE (NGX) [Interacting]
     Route: 065
  2. FLUOXETINE [Suspect]
     Indication: DEPRESSION
     Dosage: 40 MG, UNK
     Route: 048
     Dates: start: 20050210, end: 20080903
  3. OXYCONTIN [Interacting]
     Indication: GOUT
     Dosage: 80 MG, BID
     Route: 048
     Dates: start: 20061016
  4. OXYCONTIN [Interacting]
     Indication: ARTHRALGIA
  5. OXYCONTIN [Interacting]
     Indication: OSTEOARTHRITIS
  6. OXYCONTIN [Interacting]
     Indication: SARCOIDOSIS
  7. OXYCODONE HCL [Interacting]
     Indication: PAIN
     Dosage: 5 UNK, PRN
     Route: 048
     Dates: start: 20061201
  8. CALCICHEW [Concomitant]
  9. ETORICOXIB [Concomitant]
     Dosage: UNK
     Dates: start: 20051209
  10. IBANDRONIC ACID [Concomitant]
     Dosage: UNK
     Dates: start: 20060927
  11. ISPAGHULA [Concomitant]
  12. OMEPRAZOLE [Concomitant]
  13. PREDNISOLONE [Concomitant]

REACTIONS (6)
  - CONSTIPATION [None]
  - DRUG DEPENDENCE [None]
  - DRUG INEFFECTIVE [None]
  - DRUG INTERACTION [None]
  - HYPERHIDROSIS [None]
  - URINARY RETENTION [None]
